FAERS Safety Report 7387517-5 (Version None)
Quarter: 2011Q1

REPORT INFORMATION
  Report Type: 
  Country: None (occurrence: None)
  Receive Date: 20110331
  Receipt Date: 20110328
  Transmission Date: 20110831
  Serious: Yes (Death, Other)
  Sender: FDA-Public Use
  Company Number: AT-CEPHALON-2011001470

PATIENT
  Sex: Male
  Weight: 87 kg

DRUGS (7)
  1. FENTANYL CITRATE [Suspect]
     Route: 002
     Dates: start: 20100401
  2. NOVALGIN [Concomitant]
     Dates: start: 20100101
  3. FENTANYL CITRATE [Suspect]
     Indication: BREAKTHROUGH PAIN
     Route: 002
     Dates: start: 20100201, end: 20100201
  4. FENTANYL CITRATE [Suspect]
     Route: 002
     Dates: start: 20100201
  5. VOLTAREN [Concomitant]
     Dates: start: 20100101
  6. TRANSTEC [Concomitant]
     Route: 062
     Dates: start: 20100101
  7. HYDAL [Concomitant]
     Indication: BREAKTHROUGH PAIN
     Dates: start: 20100101

REACTIONS (5)
  - VERTIGO [None]
  - PANCREATIC CARCINOMA [None]
  - DRUG PRESCRIBING ERROR [None]
  - SOMNOLENCE [None]
  - DRUG INEFFECTIVE [None]
